FAERS Safety Report 5305003-0 (Version None)
Quarter: 2007Q2

REPORT INFORMATION
  Report Type: 
  Country: None (occurrence: None)
  Receive Date: 20070423
  Receipt Date: 20070411
  Transmission Date: 20071010
  Serious: Yes (Other)
  Sender: FDA-Public Use
  Company Number: AR-PFIZER INC-2007020067

PATIENT
  Age: 82 Year
  Sex: Female
  Weight: 68 kg

DRUGS (1)
  1. ZITHROMAX [Suspect]
     Indication: KAPOSI'S SARCOMA
     Route: 048
     Dates: start: 20060901, end: 20070301

REACTIONS (4)
  - CONDITION AGGRAVATED [None]
  - DRUG RESISTANCE [None]
  - HAEMORRHAGE [None]
  - MEDICATION ERROR [None]
